FAERS Safety Report 12162834 (Version 1)
Quarter: 2016Q1

REPORT INFORMATION
  Report Type: Spontaneous
  Country: JP (occurrence: JP)
  Receive Date: 20160309
  Receipt Date: 20160309
  Transmission Date: 20160526
  Serious: Yes (Other)
  Sender: FDA-Public Use
  Company Number: JP-PFIZER INC-2016139742

PATIENT

DRUGS (3)
  1. LYRICA [Suspect]
     Active Substance: PREGABALIN
     Indication: PAIN
     Dosage: 150 MG, DAILY
     Route: 048
  2. LOBU [Concomitant]
     Active Substance: LOBUCAVIR
  3. NEUROTROPIN [Concomitant]
     Active Substance: NEUROTROPIN

REACTIONS (1)
  - Deafness [Not Recovered/Not Resolved]
